FAERS Safety Report 24716230 (Version 2)
Quarter: 2024Q4

REPORT INFORMATION
  Report Type: Spontaneous
  Country: US (occurrence: US)
  Receive Date: 20241210
  Receipt Date: 20241220
  Transmission Date: 20250115
  Serious: Yes (Hospitalization)
  Sender: RANBAXY
  Company Number: US-SUN PHARMACEUTICAL INDUSTRIES LTD-2024R1-483790

PATIENT
  Age: 40 Year
  Sex: Female
  Weight: 78.912 kg

DRUGS (6)
  1. DOXORUBICIN HYDROCHLORIDE [Suspect]
     Active Substance: DOXORUBICIN HYDROCHLORIDE
     Indication: Breast cancer
     Dosage: 74 MILLIGRAM, OD
     Route: 042
     Dates: start: 20241107, end: 20241107
  2. DOXORUBICIN HYDROCHLORIDE [Suspect]
     Active Substance: DOXORUBICIN HYDROCHLORIDE
     Indication: Triple negative breast cancer
  3. AVELUMAB [Suspect]
     Active Substance: AVELUMAB
     Indication: Breast cancer
     Dosage: 778 MILLIGRAM, OD
     Route: 042
     Dates: start: 20241107, end: 20241107
  4. AVELUMAB [Suspect]
     Active Substance: AVELUMAB
     Indication: Triple negative breast cancer
  5. BINIMETINIB [Suspect]
     Active Substance: BINIMETINIB
     Indication: Breast cancer
     Dosage: 45 MILLIGRAM, BID
     Route: 048
     Dates: start: 20241024, end: 20241030
  6. BINIMETINIB [Suspect]
     Active Substance: BINIMETINIB
     Indication: Triple negative breast cancer

REACTIONS (1)
  - Musculoskeletal chest pain [Recovered/Resolved with Sequelae]

NARRATIVE: CASE EVENT DATE: 20241111
